FAERS Safety Report 26128847 (Version 1)
Quarter: 2025Q4

REPORT INFORMATION
  Report Type: Report from Study
  Country: US (occurrence: US)
  Receive Date: 20251208
  Receipt Date: 20251208
  Transmission Date: 20260117
  Serious: No
  Sender: DECIPHERA PHARMACEUTICALS
  Company Number: US-DECIPHERA PHARMACEUTICALS LLC-2025US001512

PATIENT
  Age: 28 Year
  Sex: Female
  Weight: 87.483 kg

DRUGS (1)
  1. ROMVIMZA [Suspect]
     Active Substance: VIMSELTINIB
     Indication: Synovitis
     Dosage: 30 MILLIGRAM, TWICE WEEKLY (TUESDAY AND FRIDAY)
     Dates: start: 20250516

REACTIONS (3)
  - Hepatic enzyme increased [Unknown]
  - Fatigue [Unknown]
  - Rash [Not Recovered/Not Resolved]

NARRATIVE: CASE EVENT DATE: 20250101
